FAERS Safety Report 16157001 (Version 1)
Quarter: 2019Q2

REPORT INFORMATION
  Report Type: Spontaneous
  Country: US (occurrence: US)
  Receive Date: 20190403
  Receipt Date: 20190403
  Transmission Date: 20190711
  Serious: Yes (Disabling)
  Sender: FDA-Public Use
  Company Number: None

PATIENT
  Age: 85 Year
  Sex: Female

DRUGS (10)
  1. TYLENOL [Concomitant]
     Active Substance: ACETAMINOPHEN
  2. VITAMIN D [Concomitant]
     Active Substance: VITAMIN D NOS
  3. PRILOSEC [Concomitant]
     Active Substance: OMEPRAZOLE MAGNESIUM
  4. ELIQUIS [Concomitant]
     Active Substance: APIXABAN
  5. RECLAST [Suspect]
     Active Substance: ZOLEDRONIC ACID
     Indication: OSTEOPOROSIS
     Dosage: ?          OTHER FREQUENCY:ONE DAY;?
     Route: 042
     Dates: start: 20190128, end: 20190128
  6. TRAMADOL. [Concomitant]
     Active Substance: TRAMADOL
  7. CLARATIN [Concomitant]
  8. ONE-A-DAY VITAMINS [Concomitant]
  9. CALCIUM [Concomitant]
     Active Substance: CALCIUM
  10. METROPOL [Concomitant]

REACTIONS (8)
  - Influenza like illness [None]
  - Rheumatoid arthritis [None]
  - Muscle spasms [None]
  - Fatigue [None]
  - Asthenia [None]
  - Arthralgia [None]
  - Joint swelling [None]
  - Gait disturbance [None]

NARRATIVE: CASE EVENT DATE: 20190129
